FAERS Safety Report 11497150 (Version 2)
Quarter: 2015Q3

REPORT INFORMATION
  Report Type: Spontaneous
  Country: IL (occurrence: IL)
  Receive Date: 20150911
  Receipt Date: 20150929
  Transmission Date: 20151125
  Serious: Yes (Hospitalization)
  Sender: FDA-Public Use
  Company Number: IL-JNJFOC-20150904845

PATIENT
  Age: 6 Year
  Sex: Male
  Weight: 27.1 kg

DRUGS (2)
  1. VERMOX [Suspect]
     Active Substance: MEBENDAZOLE
     Indication: PRODUCT USED FOR UNKNOWN INDICATION
     Dosage: 5 CC A DAY FOR 3 DAYS AND AFTER 10 DAYS ANOTHER SINGLE DOSE OF 5 CC
     Route: 048
     Dates: start: 201505, end: 201505
  2. VERMOX [Suspect]
     Active Substance: MEBENDAZOLE
     Indication: PRODUCT USED FOR UNKNOWN INDICATION
     Dosage: 5 CC A DAY FOR 3 DAYS AND AFTER 10 DAYS ANOTHER SINGLE DOSE OF 5 CC
     Route: 048

REACTIONS (1)
  - Nephrotic syndrome [Recovering/Resolving]

NARRATIVE: CASE EVENT DATE: 20150621
